FAERS Safety Report 4610129-0 (Version None)
Quarter: 2005Q1

REPORT INFORMATION
  Report Type: 
  Country: None (occurrence: None)
  Receive Date: 20050314
  Receipt Date: 20050302
  Transmission Date: 20050727
  Serious: Yes (Other)
  Sender: FDA-Public Use
  Company Number: 2005040300

PATIENT
  Sex: Male

DRUGS (3)
  1. LIPITOR [Suspect]
     Indication: ILL-DEFINED DISORDER
  2. GLUCOTROL [Suspect]
     Indication: ILL-DEFINED DISORDER
  3. GLIPIZIDE [Suspect]
     Indication: ILL-DEFINED DISORDER

REACTIONS (5)
  - ATRIAL FIBRILLATION [None]
  - RIB FRACTURE [None]
  - SPLENIC RUPTURE [None]
  - THROMBOSIS [None]
  - UPPER LIMB FRACTURE [None]
